FAERS Safety Report 4474013-8 (Version None)
Quarter: 2004Q4

REPORT INFORMATION
  Report Type: 
  Country: None (occurrence: None)
  Receive Date: 20041013
  Receipt Date: 20041012
  Transmission Date: 20050328
  Serious: Yes (Death)
  Sender: FDA-Public Use
  Company Number: A403525410/PHRM2004FR02851

PATIENT
  Age: 81 Year
  Sex: Female

DRUGS (6)
  1. AK-FLUOR, 10% AKORN [Suspect]
     Indication: ANGIOGRAM RETINA
     Dosage: 1 DF, ONCE/SINGLE,IV
     Route: 042
     Dates: start: 20040920
  2. TANAKAN [Concomitant]
  3. NITROGLYCERIN [Concomitant]
  4. TEMESTA [Concomitant]
  5. KARDEGIC [Concomitant]
  6. IKOREL [Concomitant]

REACTIONS (5)
  - CARDIAC ARREST [None]
  - CARDIO-RESPIRATORY ARREST [None]
  - MALAISE [None]
  - MYOCARDIAL INFARCTION [None]
  - PHARMACEUTICAL PRODUCT COMPLAINT [None]
